FAERS Safety Report 6470326-9 (Version None)
Quarter: 2009Q4

REPORT INFORMATION
  Report Type: 
  Country: None (occurrence: None)
  Receive Date: 20091203
  Receipt Date: 20091124
  Transmission Date: 20100525
  Serious: Yes (Other)
  Sender: FDA-Public Use
  Company Number: FR-MERCK-0911FRA00088

PATIENT
  Age: 86 Year
  Sex: Female

DRUGS (2)
  1. FOSAMAX PLUS D [Suspect]
     Indication: SPINAL FRACTURE
     Route: 048
     Dates: start: 20080101, end: 20090101
  2. VASOTEC [Concomitant]
     Route: 048

REACTIONS (4)
  - ARTHRALGIA [None]
  - BONE PAIN [None]
  - LUNG NEOPLASM MALIGNANT [None]
  - MYALGIA [None]
